FAERS Safety Report 5165198-9 (Version None)
Quarter: 2006Q4

REPORT INFORMATION
  Report Type: 
  Country: None (occurrence: None)
  Receive Date: 20061127
  Receipt Date: 20061108
  Transmission Date: 20070319
  Serious: Yes (Hospitalization)
  Sender: FDA-Public Use
  Company Number: 2006002139

PATIENT
  Age: 55 Year
  Sex: Female

DRUGS (10)
  1. ERLOTINIB (TABLET) [Suspect]
     Indication: PANCREATIC CARCINOMA
     Dosage: 150 MG (QD) ORAL
     Route: 048
     Dates: start: 20060919, end: 20061030
  2. BAVACIZUMAB (INJECTION FOR INFUSION) [Suspect]
     Indication: PANCREATIC CARCINOMA
     Dosage: 470 MG (Q 2 WKS), INTRAVENOUS
     Route: 042
     Dates: start: 20060919, end: 20061030
  3. EMPERAL (METOCLOPRAMIDE HYDROCHLORIDE) [Concomitant]
  4. PAMOL (PARACETAMOL) [Concomitant]
  5. OXAZEPAM [Concomitant]
  6. MAGNESIUM HYDROXIDE TAB [Concomitant]
  7. MORPHINE [Concomitant]
  8. POTASSIUM CHLORIDE [Concomitant]
  9. ZOPICLONE [Concomitant]
  10. ESCITALOPRAM OXALATE [Concomitant]

REACTIONS (4)
  - CONFUSIONAL STATE [None]
  - HAEMORRHAGE [None]
  - MEMORY IMPAIRMENT [None]
  - METASTASES TO CENTRAL NERVOUS SYSTEM [None]
